FAERS Safety Report 5299399-6 (Version None)
Quarter: 2007Q2

REPORT INFORMATION
  Report Type: 
  Country: None (occurrence: None)
  Receive Date: 20070417
  Receipt Date: 20070404
  Transmission Date: 20071010
  Serious: Yes (Other)
  Sender: FDA-Public Use
  Company Number: PHNU2007DE01465

PATIENT
  Age: 68 Year
  Sex: Female
  Weight: 54 kg

DRUGS (1)
  1. FEMARA [Suspect]
     Indication: BREAST CANCER
     Dosage: 2.5 MG, QD
     Route: 048
     Dates: start: 20060316

REACTIONS (3)
  - BLADDER CATHETERISATION [None]
  - NEPHROLITHIASIS [None]
  - RENAL STONE REMOVAL [None]
